FAERS Safety Report 20713495 (Version 1)
Quarter: 2022Q2

REPORT INFORMATION
  Report Type: Spontaneous
  Country: IT (occurrence: IT)
  Receive Date: 20220415
  Receipt Date: 20220415
  Transmission Date: 20220721
  Serious: Yes (Hospitalization, Other)
  Sender: FDA-Public Use
  Company Number: IT-MLMSERVICE-20220330-3465530-1

PATIENT
  Age: 2 Year
  Sex: Male

DRUGS (10)
  1. MYCOPHENOLATE MOFETIL [Suspect]
     Active Substance: MYCOPHENOLATE MOFETIL
     Indication: Prophylaxis against graft versus host disease
  2. FLUDARABINE [Suspect]
     Active Substance: FLUDARABINE PHOSPHATE
     Indication: Bone marrow conditioning regimen
  3. CYCLOSPORINE [Suspect]
     Active Substance: CYCLOSPORINE
     Indication: Prophylaxis against graft versus host disease
     Route: 042
  4. PREDNISONE [Suspect]
     Active Substance: PREDNISONE
     Indication: Prophylaxis against graft versus host disease
  5. METHYLPREDNISOLONE [Suspect]
     Active Substance: METHYLPREDNISOLONE
     Indication: Acute graft versus host disease in intestine
  6. TREOSULFAN [Suspect]
     Active Substance: TREOSULFAN
     Indication: Bone marrow conditioning regimen
     Dosage: FROM DAY -7 TO DAY -5, DOSE: 12 G/M2
  7. THYMOCYTE IMMUNE GLOBULIN NOS [Suspect]
     Active Substance: THYMOCYTE IMMUNE GLOBULIN NOS
     Indication: Bone marrow conditioning regimen
     Dosage: WAS EMPLOYED FROM DAY -10 TO DAY -8
  8. RUXOLITINIB [Suspect]
     Active Substance: RUXOLITINIB
     Indication: Acute graft versus host disease in intestine
  9. BEGELOMAB [Suspect]
     Active Substance: BEGELOMAB
     Indication: Condition aggravated
  10. USTEKINUMAB [Suspect]
     Active Substance: USTEKINUMAB
     Indication: Condition aggravated

REACTIONS (6)
  - Bacterial translocation [Recovered/Resolved]
  - Pneumoretroperitoneum [Recovered/Resolved]
  - Gastrointestinal infection [Recovered/Resolved]
  - Pneumomediastinum [Recovered/Resolved]
  - Pneumatosis intestinalis [Recovered/Resolved]
  - Pancreatitis acute [Recovered/Resolved]
